FAERS Safety Report 8863885 (Version 1)
Quarter: 2012Q4

REPORT INFORMATION
  Report Type: 
  Country: US (occurrence: US)
  Receive Date: 20121024
  Receipt Date: 20121024
  Transmission Date: 20130627
  Serious: No
  Sender: FDA-Public Use
  Company Number: US-AMGEN-USASP2011064761

PATIENT
  Age: 65 Year
  Sex: Female

DRUGS (18)
  1. ENBREL [Suspect]
     Indication: PRODUCT USED FOR UNKNOWN INDICATION
     Dosage: 25 mg, 2 times/wk
     Route: 058
  2. ARTHROTEC [Concomitant]
  3. TRAMADOL [Concomitant]
     Dosage: 50 mg, UNK
  4. NEXIUM [Concomitant]
     Dosage: 20 mg, UNK
  5. LEVOTHYROXIN [Concomitant]
     Dosage: 25 mug, UNK
  6. GABAPENTIN [Concomitant]
     Dosage: 100 mg, UNK
  7. HYDROXYCHLOROQUINE [Suspect]
     Dosage: 200 mg, UNK
  8. DYNACIRC [Suspect]
     Dosage: 2.5 mg, UNK
  9. ACTONEL [Concomitant]
     Dosage: 5 mg, UNK
  10. RESTASIS [Concomitant]
     Dosage: UNK
  11. ELESTAT [Concomitant]
  12. VITAMIN D3 [Concomitant]
  13. FLAXSEED OIL [Concomitant]
  14. CALCIUM [Concomitant]
  15. MULTIVITAMIN [Concomitant]
  16. ESTER C                            /00008001/ [Concomitant]
  17. PREDNISONE [Concomitant]
     Dosage: 1 mg, UNK
  18. L-LYSINE [Concomitant]
     Dosage: 500 mg, UNK

REACTIONS (5)
  - Oral herpes [Unknown]
  - Hypersensitivity [Unknown]
  - Urticaria [Unknown]
  - Diarrhoea [Unknown]
  - Rash [Unknown]
